FAERS Safety Report 5033544-2 (Version None)
Quarter: 2006Q2

REPORT INFORMATION
  Report Type: 
  Country: None (occurrence: None)
  Receive Date: 20060623
  Receipt Date: 20060220
  Transmission Date: 20061013
  Serious: Yes (Other)
  Sender: FDA-Public Use
  Company Number: 2006AC00334

PATIENT
  Age: 58 Year
  Sex: Female

DRUGS (4)
  1. BUPIVACAINE [Suspect]
     Indication: LOCAL ANAESTHESIA
  2. BUPIVACAINE [Suspect]
  3. BUPIVACAINE [Suspect]
  4. BUPIVACAINE [Suspect]

REACTIONS (1)
  - APHONIA [None]
